FAERS Safety Report 5953202-7 (Version None)
Quarter: 2008Q4

REPORT INFORMATION
  Report Type: 
  Country: None (occurrence: None)
  Receive Date: 20081114
  Receipt Date: 20081110
  Transmission Date: 20090506
  Serious: Yes (Death)
  Sender: FDA-Public Use
  Company Number: CA-ABBOTT-08P-028-0486687-00

PATIENT
  Sex: Male
  Weight: 45.4 kg

DRUGS (1)
  1. LUPRON DEPOT [Suspect]
     Indication: PROSTATE CANCER
     Dates: start: 20080212, end: 20080611

REACTIONS (2)
  - CARDIO-RESPIRATORY ARREST [None]
  - COMA [None]
